FAERS Safety Report 4818354-0 (Version None)
Quarter: 2005Q3

REPORT INFORMATION
  Report Type: 
  Country: None (occurrence: None)
  Receive Date: 20050929
  Receipt Date: 20050609
  Transmission Date: 20060218
  Serious: No
  Sender: FDA-Public Use
  Company Number: 05P-163-0302747-00

PATIENT
  Age: 56 Year
  Sex: Female
  Weight: 63.05 kg

DRUGS (8)
  1. HUMIRA [Suspect]
     Indication: RHEUMATOID ARTHRITIS
     Dosage: 40 MG, 1 IN 2 WK, SUBCUTANEOUS
     Route: 058
     Dates: start: 20040401, end: 20050601
  2. SULFASALAZINE [Concomitant]
  3. CALCIUM WITH VITAMIN D [Concomitant]
  4. PREDNISONE [Concomitant]
  5. ALENDRONATE SODIUM [Concomitant]
  6. MULTIVITAMINS AND IRON [Concomitant]
  7. OXYCODONE [Concomitant]
  8. ESOMEPRAZOLE [Concomitant]

REACTIONS (1)
  - ALOPECIA [None]
